FAERS Safety Report 23376735 (Version 2)
Quarter: 2025Q2

REPORT INFORMATION
  Report Type: Spontaneous
  Country: CA (occurrence: CA)
  Receive Date: 20240108
  Receipt Date: 20250429
  Transmission Date: 20250716
  Serious: Yes (Other)
  Sender: AUROBINDO
  Company Number: CA-AUROBINDO-AUR-APL-2023-037539

PATIENT
  Age: 30 Year
  Sex: Female

DRUGS (4)
  1. CINACALCET [Suspect]
     Active Substance: CINACALCET
     Indication: Hypercalcaemia
     Dosage: 30 MILLIGRAM, TWO TIMES A DAY
     Route: 065
  2. CINACALCET [Suspect]
     Active Substance: CINACALCET
     Indication: Hyperparathyroidism primary
  3. CALCITONIN [Suspect]
     Active Substance: CALCITONIN
     Indication: Hypercalcaemia
     Route: 065
  4. CALCITONIN [Suspect]
     Active Substance: CALCITONIN
     Indication: Hyperparathyroidism primary

REACTIONS (6)
  - Hungry bone syndrome [Unknown]
  - Pathological fracture [Unknown]
  - Premature rupture of membranes [Unknown]
  - Premature delivery [Unknown]
  - Fall [Unknown]
  - Maternal exposure during pregnancy [Unknown]
